FAERS Safety Report 17595411 (Version 1)
Quarter: 2020Q1

REPORT INFORMATION
  Report Type: Spontaneous
  Country: US (occurrence: US)
  Receive Date: 20200329
  Receipt Date: 20200329
  Transmission Date: 20200409
  Serious: No
  Sender: FDA-Public Use
  Company Number: US-TEVA-2020-US-1215319

PATIENT
  Sex: Female

DRUGS (1)
  1. DIFLUNISAL. [Suspect]
     Active Substance: DIFLUNISAL
     Dosage: 500 MG
     Route: 048

REACTIONS (4)
  - Eye swelling [Unknown]
  - Rash pruritic [Unknown]
  - Rash [Unknown]
  - Nasal septum disorder [Unknown]
